FAERS Safety Report 9072083 (Version 1)
Quarter: 2013Q1

REPORT INFORMATION
  Report Type: Spontaneous
  Country: IT (occurrence: IT)
  Receive Date: 20130129
  Receipt Date: 20130129
  Transmission Date: 20140127
  Serious: Yes (Other)
  Sender: FDA-Public Use
  Company Number: IT-ROCHE-1184919

PATIENT
  Age: 85 None
  Sex: Male

DRUGS (1)
  1. TORADOL [Suspect]
     Indication: FLANK PAIN
     Dosage: SOLUTION
     Route: 048
     Dates: start: 20121202, end: 20121204

REACTIONS (2)
  - Renal failure acute [Recovering/Resolving]
  - Blood creatinine increased [Recovering/Resolving]
